FAERS Safety Report 7943136-0 (Version None)
Quarter: 2011Q4

REPORT INFORMATION
  Report Type: 
  Country: None (occurrence: None)
  Receive Date: 20111128
  Receipt Date: 20111115
  Transmission Date: 20120403
  Serious: Yes (Other)
  Sender: FDA-Public Use
  Company Number: PHHY2011US50051

PATIENT
  Sex: Female

DRUGS (1)
  1. EXJADE [Suspect]
     Dosage: 1000 MG, BID
     Route: 048

REACTIONS (7)
  - INFLUENZA [None]
  - LOWER RESPIRATORY TRACT INFECTION [None]
  - SINUSITIS [None]
  - NASOPHARYNGITIS [None]
  - MALAISE [None]
  - COUGH [None]
  - BLOOD GLUCOSE INCREASED [None]
